FAERS Safety Report 12886226 (Version 1)
Quarter: 2016Q4

REPORT INFORMATION
  Report Type: Spontaneous
  Country: US (occurrence: US)
  Receive Date: 20161026
  Receipt Date: 20161026
  Transmission Date: 20170207
  Serious: Yes (Hospitalization)
  Sender: FDA-Public Use
  Company Number: US-ASTRAZENECA-2016SF11609

PATIENT
  Age: 890 Month
  Sex: Male
  Weight: 108.9 kg

DRUGS (6)
  1. MOVANTIK [Suspect]
     Active Substance: NALOXEGOL OXALATE
     Indication: CONSTIPATION
     Route: 048
     Dates: start: 201608, end: 20161011
  2. MOVANTIK [Suspect]
     Active Substance: NALOXEGOL OXALATE
     Indication: GASTROINTESTINAL DISORDER
     Route: 048
     Dates: start: 20161014
  3. HYPERTENSIVE MEDICATIONS [Concomitant]
     Indication: HYPERTENSION
  4. FENTANYL. [Concomitant]
     Active Substance: FENTANYL
     Route: 062
  5. MOVANTIK [Suspect]
     Active Substance: NALOXEGOL OXALATE
     Indication: GASTROINTESTINAL DISORDER
     Route: 048
     Dates: start: 201608, end: 20161011
  6. MOVANTIK [Suspect]
     Active Substance: NALOXEGOL OXALATE
     Indication: CONSTIPATION
     Route: 048
     Dates: start: 20161014

REACTIONS (11)
  - Dizziness [Unknown]
  - Drug dose omission [Unknown]
  - Hypophagia [Unknown]
  - Off label use [Not Recovered/Not Resolved]
  - Constipation [Not Recovered/Not Resolved]
  - Drug ineffective [Unknown]
  - Vomiting [Unknown]
  - Nausea [Unknown]
  - Product use issue [Not Recovered/Not Resolved]
  - Blood pressure increased [Unknown]
  - Frequent bowel movements [Unknown]

NARRATIVE: CASE EVENT DATE: 201608
